FAERS Safety Report 16261641 (Version 1)
Quarter: 2019Q2

REPORT INFORMATION
  Report Type: Spontaneous
  Country: CH (occurrence: CH)
  Receive Date: 20190501
  Receipt Date: 20190501
  Transmission Date: 20190711
  Serious: Yes (Hospitalization)
  Sender: FDA-Public Use
  Company Number: CH-ASTRAZENECA-2019SE62767

PATIENT
  Age: 75 Year
  Sex: Male

DRUGS (11)
  1. LANTUS [Concomitant]
     Active Substance: INSULIN GLARGINE
     Dosage: 100 L U/MI 35-0-0-0 SUBCUTANEOUSLY
     Dates: start: 20190310
  2. KLACID [Concomitant]
     Active Substance: CLARITHROMYCIN
     Dosage: 250 MG 0-0-1 TAKEN ORALLY
     Dates: start: 20190309, end: 20190413
  3. FORXIGA [Suspect]
     Active Substance: DAPAGLIFLOZIN
     Indication: TYPE 2 DIABETES MELLITUS
     Route: 048
     Dates: start: 20190308, end: 20190308
  4. METHOTREXATE. [Suspect]
     Active Substance: METHOTREXATE
     Indication: POLYMYALGIA RHEUMATICA
     Route: 065
     Dates: start: 20190308
  5. DAFALGAN [Concomitant]
     Active Substance: ACETAMINOPHEN
     Indication: ANALGESIC THERAPY
     Dates: start: 20190310, end: 20190313
  6. ROSUVASTATIN. [Concomitant]
     Active Substance: ROSUVASTATIN
  7. PERFALGAN [Concomitant]
     Active Substance: ACETAMINOPHEN
     Route: 042
     Dates: end: 20190410
  8. NOVALGIN (METAMIZOLE SODIUM) [Concomitant]
     Active Substance: METAMIZOLE SODIUM
     Indication: ANALGESIC THERAPY
     Dates: start: 20190311
  9. PIPERACILLIN/TAZOBACTAM SANDOZ [Suspect]
     Active Substance: PIPERACILLIN SODIUM\TAZOBACTAM SODIUM
     Indication: SEPSIS
     Dosage: 4.5 G 1 -0-1 INTRAVENOUS ADMINISTRATION
     Route: 065
     Dates: start: 20190310, end: 20190313
  10. ROCEPHIN [Concomitant]
     Active Substance: CEFTRIAXONE SODIUM
     Dates: start: 20190308, end: 20190310
  11. AMLODIPIN SANDOZ [Concomitant]
     Dates: start: 20190323

REACTIONS (11)
  - Acute kidney injury [Unknown]
  - Agranulocytosis [Unknown]
  - Diverticulum [Unknown]
  - Urinary tract infection [Unknown]
  - Bronchitis [Unknown]
  - Post streptococcal glomerulonephritis [Unknown]
  - Pancytopenia [Unknown]
  - Sepsis [Unknown]
  - Enterococcal infection [Unknown]
  - Bacteraemia [Unknown]
  - Acute generalised exanthematous pustulosis [Unknown]
